FAERS Safety Report 6083595-4 (Version None)
Quarter: 2009Q1

REPORT INFORMATION
  Report Type: 
  Country: None (occurrence: None)
  Receive Date: 20090219
  Receipt Date: 20090217
  Transmission Date: 20090719
  Serious: Yes (Death, Other)
  Sender: FDA-Public Use
  Company Number: KR-BRISTOL-MYERS SQUIBB COMPANY-14509293

PATIENT
  Age: 60 Year
  Sex: Male

DRUGS (5)
  1. CISPLATIN [Suspect]
     Indication: LUNG NEOPLASM MALIGNANT
  2. DOCETAXEL [Suspect]
     Indication: LUNG NEOPLASM MALIGNANT
  3. RADIOTHERAPY [Suspect]
     Indication: LUNG NEOPLASM MALIGNANT
     Dosage: 1DF-63GY TOTAL
  4. GEMCITABINE [Suspect]
     Indication: LUNG NEOPLASM MALIGNANT
  5. VINORELBINE [Suspect]
     Indication: LUNG NEOPLASM MALIGNANT

REACTIONS (2)
  - AORTO-OESOPHAGEAL FISTULA [None]
  - OESOPHAGEAL STENOSIS [None]
